FAERS Safety Report 10020028 (Version 1)
Quarter: 2014Q1

REPORT INFORMATION
  Report Type: Spontaneous
  Country: BR (occurrence: BR)
  Receive Date: 20140318
  Receipt Date: 20140318
  Transmission Date: 20141002
  Serious: Yes (Hospitalization, Other)
  Sender: FDA-Public Use
  Company Number: BR-ELI_LILLY_AND_COMPANY-BR201403004465

PATIENT
  Age: 10 Year
  Sex: Female
  Weight: 34 kg

DRUGS (8)
  1. HUMALOG [Suspect]
     Indication: PRODUCT USED FOR UNKNOWN INDICATION
     Dosage: UNK UNK, OTHER
     Route: 058
     Dates: start: 201312
  2. DAIVOBET [Concomitant]
     Indication: PSORIASIS
     Dosage: UNK, UNKNOWN
     Route: 065
  3. DIPROSALIC [Concomitant]
     Indication: PSORIASIS
     Dosage: UNK, UNKNOWN
     Route: 065
  4. INSULIN [Concomitant]
     Indication: PRODUCT USED FOR UNKNOWN INDICATION
     Dosage: UNK, UNKNOWN
     Route: 058
  5. HUMULIN N [Suspect]
     Indication: PRODUCT USED FOR UNKNOWN INDICATION
     Dosage: 18 IU, EACH MORNING
     Route: 058
     Dates: start: 20111028
  6. HUMULIN N [Suspect]
     Dosage: 10 IU, QD
     Route: 058
     Dates: start: 20111028
  7. HUMULIN N [Suspect]
     Dosage: UNK UNK, EACH EVENING
     Route: 058
     Dates: start: 20111028
  8. HUMULIN R [Suspect]
     Indication: PRODUCT USED FOR UNKNOWN INDICATION
     Dosage: UNK UNK, OTHER
     Route: 058
     Dates: start: 201109, end: 201312

REACTIONS (11)
  - Dehydration [Recovered/Resolved]
  - Renal disorder [Recovered/Resolved]
  - Psoriasis [Unknown]
  - Protein total increased [Recovered/Resolved]
  - Injection site pain [Not Recovered/Not Resolved]
  - Blood glucose increased [Unknown]
  - Drug ineffective [Unknown]
  - Inappropriate schedule of drug administration [Unknown]
  - Insulin resistance [Unknown]
  - Blood glucose decreased [Unknown]
  - Diabetes mellitus inadequate control [Recovered/Resolved]
